FAERS Safety Report 5251617-6 (Version None)
Quarter: 2007Q1

REPORT INFORMATION
  Report Type: 
  Country: None (occurrence: None)
  Receive Date: 20070228
  Receipt Date: 20061010
  Transmission Date: 20070707
  Serious: No
  Sender: FDA-Public Use
  Company Number: US-GLAXOSMITHKLINE-A0621658A

PATIENT
  Age: 53 Year
  Sex: Male

DRUGS (1)
  1. LAMICTAL [Suspect]
     Indication: TRIGEMINAL NEURALGIA
     Dosage: 300MG VARIABLE DOSE
     Route: 048
     Dates: start: 20060901

REACTIONS (2)
  - DIZZINESS [None]
  - SALIVARY HYPERSECRETION [None]
